FAERS Safety Report 25360988 (Version 1)
Quarter: 2025Q2

REPORT INFORMATION
  Report Type: Spontaneous
  Country: FR (occurrence: FR)
  Receive Date: 20250527
  Receipt Date: 20250527
  Transmission Date: 20250717
  Serious: Yes (Death, Hospitalization)
  Sender: RANBAXY
  Company Number: FR-AFSSAPS-MP2025000271

PATIENT
  Age: 57 Year
  Sex: Male

DRUGS (3)
  1. METFORMIN [Suspect]
     Active Substance: METFORMIN HYDROCHLORIDE
     Indication: Diabetes mellitus
     Route: 048
     Dates: end: 20250131
  2. JARDIANCE [Suspect]
     Active Substance: EMPAGLIFLOZIN
     Indication: Diabetes mellitus
     Dosage: 10 MILLIGRAM, DAILY
     Route: 048
     Dates: end: 20250131
  3. GLYBURIDE [Concomitant]
     Active Substance: GLYBURIDE
     Indication: Diabetes mellitus
     Route: 048
     Dates: end: 20250131

REACTIONS (1)
  - Metabolic acidosis [Fatal]

NARRATIVE: CASE EVENT DATE: 20250131
